FAERS Safety Report 9363175 (Version 2)
Quarter: 2013Q3

REPORT INFORMATION
  Report Type: Spontaneous
  Country: US (occurrence: US)
  Receive Date: 20130624
  Receipt Date: 20130725
  Transmission Date: 20140515
  Serious: No
  Sender: FDA-Public Use
  Company Number: US-009507513-1306USA009997

PATIENT
  Age: 29 Year
  Sex: Female
  Weight: 130.61 kg

DRUGS (2)
  1. NEXPLANON [Suspect]
     Indication: CONTRACEPTION
     Dosage: ONCE EVERY 3 YEARS
     Route: 059
     Dates: start: 20121130, end: 20130619
  2. NEXPLANON [Suspect]
     Dosage: UNK

REACTIONS (3)
  - Amenorrhoea [Unknown]
  - Device kink [Recovered/Resolved]
  - Device breakage [Unknown]
